FAERS Safety Report 14664849 (Version 1)
Quarter: 2018Q1

REPORT INFORMATION
  Report Type: Report from Study
  Country: ES (occurrence: ES)
  Receive Date: 20180321
  Receipt Date: 20180321
  Transmission Date: 20180509
  Serious: Yes (Hospitalization, Disabling)
  Sender: FDA-Public Use
  Company Number: ES-PFIZER INC-2018113013

PATIENT
  Age: 61 Year
  Sex: Female

DRUGS (4)
  1. LOXIFAN [Suspect]
     Active Substance: LETROZOLE
     Indication: BREAST CANCER
     Dosage: 1 CP
     Route: 048
     Dates: start: 20110203
  2. CYCLOPHOSPHAMIDE. [Interacting]
     Active Substance: CYCLOPHOSPHAMIDE
     Indication: BREAST CANCER
     Dosage: SP 4 CYCLES
     Route: 042
     Dates: start: 20100909, end: 20101209
  3. EPIRUBICIN HCL [Suspect]
     Active Substance: EPIRUBICIN HYDROCHLORIDE
     Indication: BREAST CANCER
     Dosage: SP 4 CYCLES
     Route: 042
     Dates: start: 20100909, end: 20101209
  4. DOCETAXEL. [Interacting]
     Active Substance: DOCETAXEL
     Indication: BREAST CANCER
     Dosage: SP 4 CYCLES
     Route: 042
     Dates: start: 20100909, end: 20101209

REACTIONS (2)
  - Drug interaction [Unknown]
  - Left ventricular dysfunction [Recovered/Resolved with Sequelae]

NARRATIVE: CASE EVENT DATE: 20120419
